FAERS Safety Report 23110264 (Version 1)
Quarter: 2023Q4

REPORT INFORMATION
  Report Type: Spontaneous
  Country: US (occurrence: None)
  Receive Date: 20231024
  Receipt Date: 20231024
  Transmission Date: 20240110
  Serious: Yes (Hospitalization)
  Sender: FDA-Public Use
  Company Number: None

PATIENT
  Age: 71 Year
  Sex: Male

DRUGS (1)
  1. NAPROXEN [Suspect]
     Active Substance: NAPROXEN
     Dates: start: 20140917, end: 20220915

REACTIONS (2)
  - Duodenal ulcer [None]
  - Haemorrhage [None]

NARRATIVE: CASE EVENT DATE: 20220915
